FAERS Safety Report 11924428 (Version 4)
Quarter: 2016Q2

REPORT INFORMATION
  Report Type: Spontaneous
  Country: US (occurrence: US)
  Receive Date: 20160118
  Receipt Date: 20160406
  Transmission Date: 20160815
  Serious: Yes (Death, Hospitalization)
  Sender: FDA-Public Use
  Company Number: US-JNJFOC-20160108753

PATIENT
  Age: 71 Year
  Sex: Female

DRUGS (6)
  1. XARELTO [Suspect]
     Active Substance: RIVAROXABAN
     Indication: ATRIAL FIBRILLATION
     Route: 048
     Dates: start: 20150224, end: 20150302
  2. TYLENOL [Suspect]
     Active Substance: ACETAMINOPHEN
     Route: 065
  3. XARELTO [Suspect]
     Active Substance: RIVAROXABAN
     Indication: THROMBOSIS PROPHYLAXIS
     Route: 048
     Dates: start: 20150224, end: 20150302
  4. XARELTO [Suspect]
     Active Substance: RIVAROXABAN
     Indication: CEREBROVASCULAR ACCIDENT PROPHYLAXIS
     Route: 048
     Dates: start: 20150224, end: 20150302
  5. TYLENOL [Suspect]
     Active Substance: ACETAMINOPHEN
     Indication: PRODUCT USED FOR UNKNOWN INDICATION
     Route: 065
  6. ZYRTEC [Concomitant]
     Active Substance: CETIRIZINE HYDROCHLORIDE
     Indication: PRODUCT USED FOR UNKNOWN INDICATION
     Route: 065

REACTIONS (3)
  - Acute kidney injury [Unknown]
  - Shock haemorrhagic [Fatal]
  - Upper gastrointestinal haemorrhage [Fatal]

NARRATIVE: CASE EVENT DATE: 20150301
